FAERS Safety Report 18296033 (Version 1)
Quarter: 2020Q3

REPORT INFORMATION
  Report Type: Report from Study
  Country: US (occurrence: US)
  Receive Date: 20200922
  Receipt Date: 20200922
  Transmission Date: 20201103
  Serious: Yes (Other)
  Sender: FDA-Public Use
  Company Number: US-UCBSA-2020036180

PATIENT
  Sex: Male

DRUGS (2)
  1. LEVETIRACETAM. [Suspect]
     Active Substance: LEVETIRACETAM
     Indication: EPILEPSY
     Dosage: 500 MG 3.5 TABLET IN MORNING AND 4 AT NIGHT
  2. VIMPAT [Suspect]
     Active Substance: LACOSAMIDE
     Indication: EPILEPSY
     Dosage: 50 MG 1 TABLET, 200 MG 1.5 TABLET IN AM, 200MG 2 AT PM

REACTIONS (3)
  - Coronary arterial stent insertion [Unknown]
  - Product use issue [Unknown]
  - Overdose [Unknown]
